FAERS Safety Report 22517330 (Version 1)
Quarter: 2023Q2

REPORT INFORMATION
  Report Type: Spontaneous
  Country: US (occurrence: US)
  Receive Date: 20230603
  Receipt Date: 20230603
  Transmission Date: 20230722
  Serious: No
  Sender: FDA-Public Use
  Company Number: US-HETERO-HET2023US01531

PATIENT
  Age: 68 Year
  Sex: Female

DRUGS (3)
  1. LOSARTAN [Suspect]
     Active Substance: LOSARTAN
     Indication: Hypertension
     Dosage: UNK
     Route: 065
     Dates: start: 202303, end: 202303
  2. OCALIVA [Concomitant]
     Active Substance: OBETICHOLIC ACID
     Indication: Primary biliary cholangitis
     Dosage: 5 MG, Q.D.
     Route: 048
     Dates: start: 20220221, end: 2022
  3. OCALIVA [Concomitant]
     Active Substance: OBETICHOLIC ACID
     Dosage: 5 MG, Q.D.
     Route: 048

REACTIONS (2)
  - Supraventricular tachycardia [Unknown]
  - Cough [Unknown]

NARRATIVE: CASE EVENT DATE: 20230301
